FAERS Safety Report 13661358 (Version 1)
Quarter: 2017Q2

REPORT INFORMATION
  Report Type: Spontaneous
  Country: US (occurrence: US)
  Receive Date: 20170616
  Receipt Date: 20170616
  Transmission Date: 20170830
  Serious: No
  Sender: FDA-Public Use
  Company Number: US-US WORLDMEDS, LLC-USW201612-000835

PATIENT
  Sex: Male
  Weight: 102.05 kg

DRUGS (12)
  1. METOPROLOL. [Concomitant]
     Active Substance: METOPROLOL
  2. LOSARTAN. [Concomitant]
     Active Substance: LOSARTAN
  3. ELIQUIS [Concomitant]
     Active Substance: APIXABAN
  4. DETROL [Concomitant]
     Active Substance: TOLTERODINE TARTRATE
  5. TAMSULOSIN [Concomitant]
     Active Substance: TAMSULOSIN
  6. BUTMETANIDE [Concomitant]
  7. SIMVASTATIN. [Concomitant]
     Active Substance: SIMVASTATIN
  8. METFORMIN [Concomitant]
     Active Substance: METFORMIN HYDROCHLORIDE
  9. RYTARY [Concomitant]
     Active Substance: CARBIDOPA\LEVODOPA
     Route: 048
  10. APOKYN [Suspect]
     Active Substance: APOMORPHINE HYDROCHLORIDE
     Indication: PARKINSON^S DISEASE
     Route: 058
     Dates: start: 201601
  11. ALLOPURINOL. [Concomitant]
     Active Substance: ALLOPURINOL
  12. POTASSIUM CL [Concomitant]
     Active Substance: POTASSIUM CHLORIDE

REACTIONS (2)
  - Vomiting [Recovered/Resolved]
  - Nausea [Recovered/Resolved]
